FAERS Safety Report 21347472 (Version 1)
Quarter: 2022Q3

REPORT INFORMATION
  Report Type: Spontaneous
  Country: FR (occurrence: FR)
  Receive Date: 20220919
  Receipt Date: 20220919
  Transmission Date: 20221027
  Serious: Yes (Hospitalization, Other)
  Sender: FDA-Public Use
  Company Number: FR-DENTSPLY-2022SCDP000263

PATIENT
  Age: 36 Year
  Sex: Female
  Weight: 117 kg

DRUGS (1)
  1. LIDOCAINE HYDROCHLORIDE AND EPINEPHRINE BITARTRATE [Suspect]
     Active Substance: EPINEPHRINE BITARTRATE\LIDOCAINE HYDROCHLORIDE
     Indication: Caesarean section
     Dosage: 15 MILLILITER TOTAL
     Dates: start: 20220727

REACTIONS (2)
  - Spinal cord ischaemia [None]
  - Motor dysfunction [None]

NARRATIVE: CASE EVENT DATE: 20220727
